FAERS Safety Report 10360234 (Version 2)
Quarter: 2014Q3

REPORT INFORMATION
  Report Type: Report from Study
  Country: BR (occurrence: BR)
  Receive Date: 20140804
  Receipt Date: 20140819
  Transmission Date: 20150326
  Serious: Yes (Hospitalization, Other)
  Sender: FDA-Public Use
  Company Number: PHHY2014BR095262

PATIENT
  Age: 89 Year
  Sex: Female
  Weight: 63 kg

DRUGS (9)
  1. AAS [Concomitant]
     Active Substance: ASPIRIN
     Indication: ANGIOPATHY
     Dosage: 1 RTABLET (100 MG) DAILY
     Route: 048
  2. DIGOXIN. [Concomitant]
     Active Substance: DIGOXIN
     Indication: CARDIAC DISORDER
     Dosage: 1 TABLET (25 MG) DAILY
     Route: 048
  3. REMINYL [Concomitant]
     Active Substance: GALANTAMINE
     Indication: DEMENTIA ALZHEIMER^S TYPE
     Dosage: 1 TABLET (1`5 MG) DAILY
     Route: 048
  4. ACLASTA [Suspect]
     Active Substance: ZOLEDRONIC ACID
     Indication: OSTEOPOROSIS
     Dosage: 5MG/100ML (1 APPLICATION ONCE A YEAR)
     Route: 042
     Dates: start: 20130605
  5. FUROSEMIDE. [Concomitant]
     Active Substance: FUROSEMIDE
     Indication: HYPERTENSION
     Dosage: 1 TABLET (40 MG) DAILY
     Route: 048
  6. GLIBENCLAMIDE [Concomitant]
     Active Substance: GLYBURIDE
     Dosage: 5 MG, UNK
     Route: 048
  7. LIPLESS [Concomitant]
     Active Substance: CIPROFIBRATE
     Indication: BLOOD CHOLESTEROL ABNORMAL
     Dosage: 1 TABLET (100 MG) DAILY
     Route: 048
  8. CAPTOPRIL. [Concomitant]
     Active Substance: CAPTOPRIL
     Indication: HYPERTENSION
     Dosage: 2 TABLETS (OF 25 MG) DAILY
     Route: 048
  9. SERTRALINE [Concomitant]
     Active Substance: SERTRALINE HYDROCHLORIDE
     Indication: MEMORY IMPAIRMENT
     Dosage: 1 TABLET (50MG) DAILY
     Route: 048

REACTIONS (4)
  - Fall [Recovering/Resolving]
  - Dizziness [Recovering/Resolving]
  - Femur fracture [Recovering/Resolving]
  - Blood pressure decreased [Recovering/Resolving]

NARRATIVE: CASE EVENT DATE: 20140108
